FAERS Safety Report 4754247-5 (Version None)
Quarter: 2005Q3

REPORT INFORMATION
  Report Type: 
  Country: None (occurrence: None)
  Receive Date: 20050829
  Receipt Date: 20050818
  Transmission Date: 20060218
  Serious: Yes (Hospitalization)
  Sender: FDA-Public Use
  Company Number: US-JNJFOC-20050804658

PATIENT
  Age: 70 Year
  Sex: Male

DRUGS (2)
  1. ULTRAM [Suspect]
     Indication: PAIN
     Route: 048
  2. LEXAPRO [Concomitant]

REACTIONS (2)
  - CONFUSIONAL STATE [None]
  - MYOCLONUS [None]
